FAERS Safety Report 10732967 (Version 3)
Quarter: 2015Q2

REPORT INFORMATION
  Report Type: Spontaneous
  Country: US (occurrence: US)
  Receive Date: 20150123
  Receipt Date: 20150429
  Transmission Date: 20150821
  Serious: Yes (Other)
  Sender: FDA-Public Use
  Company Number: US-PFIZER INC-2015028109

PATIENT
  Age: 66 Year
  Sex: Female
  Weight: 100 kg

DRUGS (1)
  1. XELJANZ [Suspect]
     Active Substance: TOFACITINIB CITRATE
     Indication: RHEUMATOID ARTHRITIS
     Dosage: 5 MG, 2X/DAY
     Dates: start: 201412

REACTIONS (9)
  - Sinusitis [Unknown]
  - Cystitis [Unknown]
  - Dysphonia [Unknown]
  - Bronchitis [Unknown]
  - Influenza [Recovered/Resolved]
  - Cough [Unknown]
  - Malaise [Unknown]
  - Respiratory tract infection [Recovered/Resolved]
  - Wheezing [Unknown]

NARRATIVE: CASE EVENT DATE: 201501
